FAERS Safety Report 9366075 (Version 3)
Quarter: 2013Q3

REPORT INFORMATION
  Report Type: Spontaneous
  Country: JP (occurrence: JP)
  Receive Date: 20130625
  Receipt Date: 20130730
  Transmission Date: 20140515
  Serious: Yes (Hospitalization, Other)
  Sender: FDA-Public Use
  Company Number: JP-PFIZER INC-2013188912

PATIENT
  Age: 65 Year
  Sex: Male
  Weight: 87 kg

DRUGS (16)
  1. LYRICA [Suspect]
     Indication: PAIN
     Dosage: 50 MG, 2X/DAY
     Route: 048
     Dates: start: 20130412, end: 20130620
  2. SEDIEL [Concomitant]
     Indication: DEPRESSION
     Dosage: 10 MG, 1X/DAY
     Route: 048
  3. REMERON [Concomitant]
     Indication: DEPRESSION
     Dosage: 15 MG, 1X/DAY
     Route: 048
  4. SILECE [Concomitant]
     Indication: INSOMNIA
     Dosage: 1 MG, 1X/DAY
     Route: 048
  5. ADALAT CR [Concomitant]
     Indication: HYPERTENSION
     Dosage: 40 MG, 1X/DAY
     Route: 048
  6. ADALAT CR [Concomitant]
     Dosage: 20 MG, 1X/DAY
     Route: 048
  7. ARTIST [Concomitant]
     Indication: CARDIAC FAILURE
     Dosage: 2.5 MG, 2X/DAY
     Route: 048
  8. PARIET [Concomitant]
     Indication: PROPHYLAXIS AGAINST GASTROINTESTINAL ULCER
     Dosage: 10 MG, 1X/DAY
     Route: 048
  9. SUCRALFATE TAIYO [Concomitant]
     Indication: GASTRITIS
     Dosage: 10 ML, 3X/DAY
     Route: 048
  10. BACTRAMIN [Concomitant]
     Indication: INFECTION PROPHYLAXIS
     Dosage: 1 DF, 1X/DAY
     Route: 048
  11. LIPITOR [Concomitant]
     Indication: DYSLIPIDAEMIA
     Dosage: 5 MG, 1X/DAY
     Route: 048
  12. PRELONE [Concomitant]
     Indication: INFLAMMATION
     Dosage: 5 MG, 3X/DAY
     Route: 048
     Dates: start: 20130530, end: 20130620
  13. SAMSCA [Concomitant]
     Indication: POLYURIA
     Dosage: 7.5 MG, 1X/DAY
     Route: 048
     Dates: start: 20130613
  14. SENNARIDE [Concomitant]
     Indication: CONSTIPATION
     Dosage: 12 MG, AS NEEDED
     Route: 048
     Dates: start: 20130613
  15. NOVORAPID [Concomitant]
     Indication: DIABETES MELLITUS
     Dosage: 22 IU, 3X/DAY
     Route: 058
  16. LANTUS [Concomitant]
     Indication: DIABETES MELLITUS
     Dosage: 22 IU, 1X/DAY
     Route: 058

REACTIONS (1)
  - Interstitial lung disease [Recovering/Resolving]
